FAERS Safety Report 15736853 (Version 1)
Quarter: 2018Q4

REPORT INFORMATION
  Report Type: Spontaneous
  Country: GB (occurrence: GB)
  Receive Date: 20181218
  Receipt Date: 20181218
  Transmission Date: 20190205
  Serious: No
  Sender: FDA-Public Use
  Company Number: GB-B. BRAUN MEDICAL INC.-2060341

PATIENT
  Sex: Female
  Weight: 70 kg

DRUGS (6)
  1. DIFFLAM (BENZYDAMINE HYDROCHLORIDE) [Concomitant]
     Dates: start: 20130920
  2. METRONIDAZOLE INJECTION USP (5 MG/ML) IN PAB? PLASTIC CONTAINER (NDA 0 [Suspect]
     Active Substance: METRONIDAZOLE
  3. BEVACIZUMAB. [Suspect]
     Active Substance: BEVACIZUMAB
     Route: 042
  4. FLUTICASONE PROPIONATE AND SALMETEROL [Concomitant]
     Active Substance: FLUTICASONE PROPIONATE\SALMETEROL XINAFOATE
     Dates: start: 20100816
  5. TIOTROPIUM BROMIDE [Concomitant]
     Active Substance: TIOTROPIUM BROMIDE
     Dates: start: 20101125
  6. VENTOLIN [Concomitant]
     Active Substance: ALBUTEROL SULFATE
     Dates: start: 20020418

REACTIONS (16)
  - Decreased appetite [Not Recovered/Not Resolved]
  - Gastrooesophageal reflux disease [Recovered/Resolved]
  - Dental caries [Recovered/Resolved]
  - Limb discomfort [Recovered/Resolved]
  - Abdominal pain upper [Recovered/Resolved]
  - Mouth ulceration [Recovered/Resolved]
  - Hypertension [Not Recovered/Not Resolved]
  - Abdominal pain [Recovered/Resolved]
  - Lower respiratory tract infection [Recovered/Resolved]
  - Proteinuria [Recovered/Resolved]
  - Tooth abscess [Recovered/Resolved]
  - Lethargy [Not Recovered/Not Resolved]
  - Chest discomfort [Recovered/Resolved]
  - Diarrhoea [Not Recovered/Not Resolved]
  - Constipation [Not Recovered/Not Resolved]
  - Vomiting [Recovered/Resolved]

NARRATIVE: CASE EVENT DATE: 20130308
